FAERS Safety Report 6262731-0 (Version None)
Quarter: 2009Q3

REPORT INFORMATION
  Report Type: 
  Country: None (occurrence: None)
  Receive Date: 20090709
  Receipt Date: 20090707
  Transmission Date: 20100115
  Serious: Yes (Other)
  Sender: FDA-Public Use
  Company Number: RU-ABBOTT-09P-251-0564999-00

PATIENT
  Age: 10 Year
  Sex: Male

DRUGS (2)
  1. DEPAKENE [Suspect]
     Indication: EPILEPSY
     Route: 048
  2. DEPAKENE [Suspect]
     Route: 048
     Dates: start: 20081201

REACTIONS (2)
  - CONVULSION [None]
  - PRODUCT COUNTERFEIT [None]
